FAERS Safety Report 8456406-7 (Version None)
Quarter: 2012Q2

REPORT INFORMATION
  Report Type: 
  Country: None (occurrence: None)
  Receive Date: 20120323
  Receipt Date: 20111214
  Transmission Date: 20120825
  Serious: Yes (Other)
  Sender: FDA-Public Use
  Company Number: 163-21880-11102551

PATIENT
  Age: 53 Year
  Sex: Female

DRUGS (4)
  1. REVLIMID [Suspect]
  2. EXJADE (DEFERASIROX)(500 MILLIGRAM, CAPSULES) [Concomitant]
  3. PACKED RED BLOOD CELL COUNT (RED BLOOD CELLS)(UNKNOWN) [Concomitant]
  4. REVLIMID [Suspect]
     Indication: LYMPHATIC DISORDER
     Dosage: 55 MG, DAILY X 21 DAYS, PO, 10.7143 MG, 3 IN 1 WK, PO, 10 MG, DAILY, PO
     Route: 048
     Dates: start: 20110923

REACTIONS (10)
  - RASH [None]
  - HERPES ZOSTER [None]
  - PRURITUS [None]
  - MUSCLE SPASMS [None]
  - FATIGUE [None]
  - CONSTIPATION [None]
  - DIARRHOEA [None]
  - MALAISE [None]
  - ANAEMIA [None]
  - ABDOMINAL PAIN [None]
